FAERS Safety Report 11514866 (Version 1)
Quarter: 2015Q3

REPORT INFORMATION
  Report Type: Spontaneous
  Country: US (occurrence: US)
  Receive Date: 20150916
  Receipt Date: 20150916
  Transmission Date: 20151125
  Serious: Yes (Hospitalization, Other)
  Sender: FDA-Public Use
  Company Number: US-JAZZ-2012-343

PATIENT
  Sex: Female

DRUGS (6)
  1. CLONIDINE. [Suspect]
     Active Substance: CLONIDINE
     Indication: PAIN
     Dosage: UNK MCG, ONCE/HOUR
     Route: 037
  2. PRIALT [Suspect]
     Active Substance: ZICONOTIDE ACETATE
     Indication: POST LAMINECTOMY SYNDROME
  3. CLONIDINE. [Suspect]
     Active Substance: CLONIDINE
     Indication: POST LAMINECTOMY SYNDROME
  4. DILAUDID [Suspect]
     Active Substance: HYDROMORPHONE HYDROCHLORIDE
     Indication: PAIN
     Dosage: UNK MG, ONCE/HOUR
     Route: 037
  5. PRIALT [Suspect]
     Active Substance: ZICONOTIDE ACETATE
     Indication: PAIN
     Dosage: UNK MCG, ONCE/HOUR
     Route: 037
  6. DILAUDID [Suspect]
     Active Substance: HYDROMORPHONE HYDROCHLORIDE
     Indication: POST LAMINECTOMY SYNDROME

REACTIONS (37)
  - Lymphoedema [Unknown]
  - Micturition disorder [Unknown]
  - Fluid retention [Unknown]
  - Parosmia [Unknown]
  - Hypersensitivity [Unknown]
  - Pruritus [Unknown]
  - Dizziness [Unknown]
  - Bone decalcification [Unknown]
  - Cellulitis [Unknown]
  - Vitamin D decreased [Unknown]
  - Skin exfoliation [Unknown]
  - Suicidal ideation [Unknown]
  - Rash [Unknown]
  - Skin discolouration [Unknown]
  - Dysuria [Unknown]
  - Peripheral swelling [Unknown]
  - Renal failure [Unknown]
  - Thyroid disorder [Unknown]
  - Blister [Unknown]
  - Feeling abnormal [Unknown]
  - Drug withdrawal syndrome [Unknown]
  - Memory impairment [Unknown]
  - Confusional state [Unknown]
  - Vomiting [Unknown]
  - Cardio-respiratory arrest [Unknown]
  - Dermatitis [Unknown]
  - Limb discomfort [Unknown]
  - Lethargy [Unknown]
  - Dysarthria [Unknown]
  - Pyrexia [Unknown]
  - Joint injury [Unknown]
  - Pain in extremity [Unknown]
  - Gait disturbance [Unknown]
  - Oedema [Unknown]
  - Emphysema [Unknown]
  - Disorientation [Unknown]
  - Device issue [Unknown]

NARRATIVE: CASE EVENT DATE: 2007
